FAERS Safety Report 4538900-4 (Version None)
Quarter: 2004Q4

REPORT INFORMATION
  Report Type: 
  Country: None (occurrence: None)
  Receive Date: 20041222
  Receipt Date: 20041203
  Transmission Date: 20050328
  Serious: Yes (Other)
  Sender: FDA-Public Use
  Company Number: USA041285270

PATIENT
  Age: 70 Year
  Sex: Female

DRUGS (4)
  1. FORTEO [Suspect]
     Indication: OSTEOPOROSIS
     Dates: start: 20041007
  2. METOPROLOL [Concomitant]
  3. BENICAR [Concomitant]
  4. MULTIVITAMIN [Concomitant]

REACTIONS (3)
  - BACK PAIN [None]
  - PHARMACEUTICAL PRODUCT COMPLAINT [None]
  - SMALL CELL LUNG CANCER RECURRENT [None]
